FAERS Safety Report 6591272-6 (Version None)
Quarter: 2010Q1

REPORT INFORMATION
  Report Type: 
  Country: None (occurrence: None)
  Receive Date: 20100219
  Receipt Date: 20100215
  Transmission Date: 20100710
  Serious: Yes (Hospitalization)
  Sender: FDA-Public Use
  Company Number: FR-TEVA-223541ISR

PATIENT
  Sex: Male

DRUGS (8)
  1. FLUOROURACIL [Suspect]
     Indication: TONGUE NEOPLASM MALIGNANT STAGE UNSPECIFIED
     Route: 042
     Dates: start: 20090817, end: 20090817
  2. CISPLATIN [Suspect]
     Indication: TONGUE NEOPLASM MALIGNANT STAGE UNSPECIFIED
     Route: 042
     Dates: start: 20090817, end: 20090817
  3. CETUXIMAB [Suspect]
     Indication: TONGUE NEOPLASM MALIGNANT STAGE UNSPECIFIED
     Route: 042
     Dates: start: 20090817, end: 20090831
  4. DEXCHLORPHENIRAMINE MALEATE [Suspect]
     Indication: PREMEDICATION
     Route: 048
     Dates: start: 20090817, end: 20090831
  5. METHYLPREDNISOLONE [Suspect]
     Route: 042
     Dates: start: 20090817, end: 20090831
  6. ONDANSETRON HYDROCHLORIDE [Suspect]
     Indication: PREMEDICATION
     Route: 042
     Dates: start: 20090817, end: 20090817
  7. APREPITANT [Suspect]
     Indication: PREMEDICATION
     Route: 048
     Dates: start: 20090818, end: 20090818
  8. APREPITANT [Suspect]
     Route: 048
     Dates: start: 20090819, end: 20090819

REACTIONS (3)
  - AMAUROSIS [None]
  - GLARE [None]
  - MALAISE [None]
